FAERS Safety Report 10740058 (Version 1)
Quarter: 2015Q1

REPORT INFORMATION
  Report Type: Spontaneous
  Country: CA (occurrence: CA)
  Receive Date: 20150127
  Receipt Date: 20150127
  Transmission Date: 20150721
  Serious: Yes (Life-Threatening, Hospitalization)
  Sender: FDA-Public Use
  Company Number: CA-ROCHE-1524943

PATIENT
  Age: 52 Year
  Sex: Male

DRUGS (26)
  1. DIAZEPAM. [Interacting]
     Active Substance: DIAZEPAM
     Dosage: FREQUENCY: ONCE; THERAPY DURATION: 1 DAY
     Route: 048
  2. OXYCODONE [Suspect]
     Active Substance: OXYCODONE
     Route: 048
  3. OXYCODONE [Suspect]
     Active Substance: OXYCODONE
     Route: 065
  4. LORAZEPAM. [Suspect]
     Active Substance: LORAZEPAM
     Indication: INSOMNIA
     Dosage: FREQUENCY: ONCE; THERAPY DURATION: 1 DAY
     Route: 048
  5. ZOPICLONE [Suspect]
     Active Substance: ZOPICLONE
     Route: 065
  6. MORPHINE [Suspect]
     Active Substance: MORPHINE
     Dosage: FREQUENCY AND THERAPY DURATION: ONCE
     Route: 065
  7. DIAZEPAM. [Interacting]
     Active Substance: DIAZEPAM
     Dosage: FREQUENCY AND THERAPY DURATION: ONCE
     Route: 048
  8. CIPRALEX [Interacting]
     Active Substance: ESCITALOPRAM OXALATE
     Dosage: FREQUENCY AND THERAPY DURATION: ONCE
     Route: 048
  9. CITALOPRAM [Suspect]
     Active Substance: CITALOPRAM HYDROBROMIDE
     Indication: PRODUCT USED FOR UNKNOWN INDICATION
     Route: 048
  10. MORPHINE SULFATE. [Suspect]
     Active Substance: MORPHINE SULFATE
     Route: 065
  11. CIPRALEX [Interacting]
     Active Substance: ESCITALOPRAM OXALATE
     Dosage: FREQUENCY: ONCE; THERAPY DURATION: 1 DAY
     Route: 065
  12. MORPHINE SULFATE. [Suspect]
     Active Substance: MORPHINE SULFATE
     Route: 065
  13. OXYCODONE [Suspect]
     Active Substance: OXYCODONE
     Route: 065
  14. OXYCODONE/ACETAMINOPHEN [Suspect]
     Active Substance: ACETAMINOPHEN\OXYCODONE HYDROCHLORIDE
     Indication: PRODUCT USED FOR UNKNOWN INDICATION
     Route: 048
  15. MORPHINE [Suspect]
     Active Substance: MORPHINE
     Dosage: FREQUENCY: ONCE; THERAPY DURATION: 1 DAY
     Route: 048
  16. ALTACE [Concomitant]
     Active Substance: RAMIPRIL
  17. MORPHINE SULFATE. [Suspect]
     Active Substance: MORPHINE SULFATE
     Indication: PRODUCT USED FOR UNKNOWN INDICATION
     Route: 048
  18. CIPRALEX [Interacting]
     Active Substance: ESCITALOPRAM OXALATE
     Indication: DEPRESSION
     Route: 065
  19. ZOPICLONE [Suspect]
     Active Substance: ZOPICLONE
     Indication: INSOMNIA
     Dosage: FREQUENCY: ONCE; THERAPY DURATION: 1 DAY
     Route: 048
  20. DIAZEPAM. [Suspect]
     Active Substance: DIAZEPAM
     Indication: SPINAL COLUMN STENOSIS
     Route: 065
  21. LORAZEPAM. [Suspect]
     Active Substance: LORAZEPAM
     Dosage: FREQUENCY AND THERAPY DURATION: ONCE
     Route: 048
  22. ZOPICLONE [Suspect]
     Active Substance: ZOPICLONE
     Dosage: FREQUENCY AND THERAPY DURATION: ONCE
     Route: 048
  23. MORPHINE [Suspect]
     Active Substance: MORPHINE
     Dosage: FREQUENCY AND THERAPY DURATION: ONCE
     Route: 065
  24. OXYCODONE [Suspect]
     Active Substance: OXYCODONE
     Indication: SPINAL COLUMN STENOSIS
     Dosage: FREQUENCY: ONCE; THERAPY DURATION: 1 DAY
     Route: 048
  25. MORPHINE [Suspect]
     Active Substance: MORPHINE
     Indication: SPINAL COLUMN STENOSIS
     Route: 048
  26. MORPHINE [Suspect]
     Active Substance: MORPHINE
     Dosage: FREQUENCY AND THERAPY DURATION: ONCE
     Route: 065

REACTIONS (21)
  - Loss of consciousness [Unknown]
  - Suicide attempt [Recovered/Resolved]
  - Blood pressure decreased [Recovered/Resolved]
  - Electrocardiogram abnormal [Unknown]
  - Blood creatinine increased [Recovered/Resolved]
  - Blood creatine phosphokinase increased [Recovered/Resolved]
  - Drug interaction [Unknown]
  - Coma [Recovered/Resolved]
  - Coma scale abnormal [Recovered/Resolved]
  - Intentional overdose [Recovered/Resolved]
  - Oxygen saturation decreased [Recovered/Resolved]
  - Hypotension [Recovered/Resolved]
  - Bradycardia [Unknown]
  - Opiates positive [Recovered/Resolved]
  - Electrocardiogram QT prolonged [Unknown]
  - Hyperkalaemia [Unknown]
  - Overdose [Unknown]
  - Heart rate decreased [Recovered/Resolved]
  - Mechanical ventilation [Recovered/Resolved]
  - Sinus tachycardia [Unknown]
  - Blood potassium increased [Recovered/Resolved]
